FAERS Safety Report 4894778-0 (Version None)
Quarter: 2006Q1

REPORT INFORMATION
  Report Type: 
  Country: None (occurrence: None)
  Receive Date: 20060130
  Receipt Date: 20060126
  Transmission Date: 20060701
  Serious: Yes (Other)
  Sender: FDA-Public Use
  Company Number: US-SOLVAY-00206000326

PATIENT
  Age: 700 Month
  Sex: Male
  Weight: 113.5 kg

DRUGS (4)
  1. NORVASC [Concomitant]
     Indication: BLOOD PRESSURE
     Dosage: DAILY DOSE: 5 GRAM(S)
     Route: 048
  2. ANDROGEL [Suspect]
     Indication: BLOOD TESTOSTERONE DECREASED
     Dosage: DAILY DOSE: 5 GRAM(S)
     Route: 062
     Dates: start: 20030101
  3. GLUCOSAMINE [Concomitant]
     Indication: ARTHRITIS
     Dosage: DAILY DOSE: UNKNOWN, TAKES ONCE A DAY
     Route: 048
  4. SAW PALMETTO WITH ZINC [Concomitant]
     Indication: PROSTATIC DISORDER
     Dosage: DAILY DOSE: UNKNOWN, TAKES ONCE A DAY
     Route: 048

REACTIONS (1)
  - SKIN CANCER [None]
